FAERS Safety Report 10786397 (Version 1)
Quarter: 2015Q1

REPORT INFORMATION
  Report Type: Spontaneous
  Country: US (occurrence: None)
  Receive Date: 20150210
  Receipt Date: 20150210
  Transmission Date: 20150721
  Serious: No
  Sender: FDA-Public Use
  Company Number: None

PATIENT
  Age: 46 Year
  Sex: Male
  Weight: 68.04 kg

DRUGS (3)
  1. CIPROFLOXACIN. [Suspect]
     Active Substance: CIPROFLOXACIN
     Indication: DIARRHOEA
     Dosage: AS NEEDED, INTO A VEIN
     Route: 042
     Dates: start: 20150130, end: 20150202
  2. CIPROFLOXACIN. [Suspect]
     Active Substance: CIPROFLOXACIN
     Indication: GASTROINTESTINAL BACTERIAL INFECTION
     Dosage: AS NEEDED, INTO A VEIN
     Route: 042
     Dates: start: 20150130, end: 20150202
  3. CIPROFLOXACIN. [Suspect]
     Active Substance: CIPROFLOXACIN
     Indication: PYREXIA
     Dosage: AS NEEDED, INTO A VEIN
     Route: 042
     Dates: start: 20150130, end: 20150202

REACTIONS (5)
  - Tendon pain [None]
  - Musculoskeletal stiffness [None]
  - Asthenia [None]
  - Tendon disorder [None]
  - Fatigue [None]

NARRATIVE: CASE EVENT DATE: 20150201
